FAERS Safety Report 5159998-9 (Version None)
Quarter: 2006Q4

REPORT INFORMATION
  Report Type: 
  Country: None (occurrence: None)
  Receive Date: 20061129
  Receipt Date: 20060526
  Transmission Date: 20070319
  Serious: No
  Sender: FDA-Public Use
  Company Number: US-GLAXOSMITHKLINE-A0607616A

PATIENT
  Sex: Male

DRUGS (1)
  1. WELLBUTRIN SR [Suspect]
     Indication: DRUG USE FOR UNKNOWN INDICATION
     Dosage: 150MG SEE DOSAGE TEXT
     Route: 048
     Dates: start: 20050101, end: 20060101

REACTIONS (3)
  - ANXIETY [None]
  - TENSION [None]
  - TINNITUS [None]
